FAERS Safety Report 6998091-7 (Version None)
Quarter: 2010Q3

REPORT INFORMATION
  Report Type: 
  Country: None (occurrence: None)
  Receive Date: 20100920
  Receipt Date: 20100517
  Transmission Date: 20110219
  Serious: Yes (Disabling)
  Sender: FDA-Public Use
  Company Number: US-ASTRAZENECA-2007UW08768

PATIENT
  Sex: Female

DRUGS (7)
  1. SEROQUEL [Suspect]
     Route: 048
     Dates: start: 20080220
  2. CYMBALTA [Concomitant]
     Dates: start: 20071212
  3. AMANTADINE [Concomitant]
     Dates: start: 20071212
  4. BENZTROPINE MESYLATE [Concomitant]
     Dates: start: 20071212
  5. ABILIFY [Concomitant]
     Dates: start: 20071212
  6. CLONAZEPAM [Concomitant]
     Dates: start: 20080114
  7. HYDROCHLOROTHIAZIDE [Concomitant]
     Dates: start: 20080221

REACTIONS (2)
  - DIABETES MELLITUS [None]
  - TYPE 1 DIABETES MELLITUS [None]
